FAERS Safety Report 6765454-4 (Version None)
Quarter: 2010Q2

REPORT INFORMATION
  Report Type: 
  Country: None (occurrence: None)
  Receive Date: 20100611
  Receipt Date: 20100601
  Transmission Date: 20101027
  Serious: Yes (Other)
  Sender: FDA-Public Use
  Company Number: CA-PFIZER INC-2010069200

PATIENT
  Age: 63 Year
  Sex: Male

DRUGS (2)
  1. DILANTIN [Suspect]
     Indication: CONVULSION
     Dosage: 100 MG, 3X/DAY
     Dates: start: 20050101, end: 20100501
  2. DILANTIN [Suspect]
     Dosage: 100 MG, 4X/DAY
     Dates: start: 20100501

REACTIONS (3)
  - ANTICONVULSANT DRUG LEVEL INCREASED [None]
  - MALAISE [None]
  - MUSCULAR WEAKNESS [None]
